FAERS Safety Report 14288661 (Version 1)
Quarter: 2017Q4

REPORT INFORMATION
  Report Type: Spontaneous
  Country: US (occurrence: US)
  Receive Date: 20171214
  Receipt Date: 20171214
  Transmission Date: 20180321
  Serious: Yes (Hospitalization, Other)
  Sender: FDA-Public Use
  Company Number: US-GLAXOSMITHKLINE-US2017192270

PATIENT
  Age: 58 Year
  Sex: Female

DRUGS (15)
  1. ALBUTEROL TABLETS [Concomitant]
  2. AMLODIPINE [Concomitant]
     Active Substance: AMLODIPINE BESYLATE
  3. HYDROCODONE + APAP [Concomitant]
  4. MONTELUKAST [Concomitant]
     Active Substance: MONTELUKAST SODIUM
  5. WARFARINE [Concomitant]
     Active Substance: WARFARIN
     Dosage: UNK
  6. OMEPRAZOLE. [Concomitant]
     Active Substance: OMEPRAZOLE
  7. BREO ELLIPTA [Suspect]
     Active Substance: FLUTICASONE FUROATE\VILANTEROL TRIFENATATE
     Indication: ASTHMA
  8. SIMVASTATIN. [Concomitant]
     Active Substance: SIMVASTATIN
  9. BREO ELLIPTA [Suspect]
     Active Substance: FLUTICASONE FUROATE\VILANTEROL TRIFENATATE
     Indication: EMPHYSEMA
  10. LEVOFLOXACIN. [Concomitant]
     Active Substance: LEVOFLOXACIN
  11. LORAZEPAM. [Concomitant]
     Active Substance: LORAZEPAM
  12. DIGOXIN. [Concomitant]
     Active Substance: DIGOXIN
  13. ASPIRIN. [Concomitant]
     Active Substance: ASPIRIN
  14. PREDNISONE. [Concomitant]
     Active Substance: PREDNISONE
  15. BREO ELLIPTA [Suspect]
     Active Substance: FLUTICASONE FUROATE\VILANTEROL TRIFENATATE
     Indication: CHRONIC OBSTRUCTIVE PULMONARY DISEASE
     Dosage: 1 PUFF(S), 1D
     Route: 055
     Dates: start: 2017

REACTIONS (2)
  - Candida infection [Recovering/Resolving]
  - Pneumonia [Recovered/Resolved]

NARRATIVE: CASE EVENT DATE: 201711
